FAERS Safety Report 9043324 (Version 1)
Quarter: 2013Q1

REPORT INFORMATION
  Report Type: Report from Study
  Country: US (occurrence: US)
  Receive Date: 20130129
  Receipt Date: 20130129
  Transmission Date: 20140127
  Serious: No
  Sender: FDA-Public Use
  Company Number: US-ABBOTT-12P-163-0909020-00

PATIENT
  Age: 54 Year
  Sex: Female

DRUGS (4)
  1. HUMIRA 40 MG/0.8 ML PEN [Suspect]
     Indication: CROHN^S DISEASE
     Dosage: 160 MG LOADING
     Dates: start: 20120216, end: 20120216
  2. HUMIRA 40 MG/0.8 ML PEN [Suspect]
  3. APRISO [Concomitant]
     Indication: CROHN^S DISEASE
     Dosage: 4 CAPS DAILY
  4. BUDESONIDE [Concomitant]
     Indication: CROHN^S DISEASE

REACTIONS (4)
  - Injection site pain [Recovering/Resolving]
  - Injection site haemorrhage [Unknown]
  - Injection site haemorrhage [Unknown]
  - Swelling face [Recovered/Resolved]
